FAERS Safety Report 15152248 (Version 5)
Quarter: 2018Q3

REPORT INFORMATION
  Report Type: Report from Study
  Country: US (occurrence: US)
  Receive Date: 20180717
  Receipt Date: 20180907
  Transmission Date: 20181010
  Serious: Yes (Other)
  Sender: FDA-Public Use
  Company Number: US-AMGEN-USASP2018093622

PATIENT
  Age: 78 Year
  Sex: Female
  Weight: 56.69 kg

DRUGS (3)
  1. PROLIA [Suspect]
     Active Substance: DENOSUMAB
     Indication: OSTEOPOROSIS POSTMENOPAUSAL
     Dosage: 60 MG, Q6MO
     Route: 065
     Dates: start: 20180129
  2. CIPRO [Concomitant]
     Active Substance: CIPROFLOXACIN HYDROCHLORIDE
     Indication: URINARY TRACT INFECTION
     Dosage: UNK
  3. BACTRIM [Concomitant]
     Active Substance: SULFAMETHOXAZOLE\TRIMETHOPRIM
     Indication: CYSTITIS
     Dosage: UNK

REACTIONS (12)
  - Sleep disorder due to a general medical condition [Unknown]
  - Myalgia [Not Recovered/Not Resolved]
  - Neuropathy peripheral [Unknown]
  - Foot fracture [Unknown]
  - Weight decreased [Unknown]
  - Immunosuppression [Unknown]
  - Hip fracture [Unknown]
  - Mycobacterium avium complex infection [Unknown]
  - Tooth fracture [Unknown]
  - Mobility decreased [Unknown]
  - Gait disturbance [Unknown]
  - Bronchiectasis [Unknown]

NARRATIVE: CASE EVENT DATE: 2018
